FAERS Safety Report 6710441-5 (Version None)
Quarter: 2010Q2

REPORT INFORMATION
  Report Type: 
  Country: None (occurrence: None)
  Receive Date: 20100504
  Receipt Date: 20100421
  Transmission Date: 20101027
  Serious: Yes (Hospitalization, Disabling)
  Sender: FDA-Public Use
  Company Number: PHHY2010HU25424

PATIENT
  Sex: Female

DRUGS (2)
  1. ZOMETA [Suspect]
     Indication: METASTASES TO BONE
     Dosage: 4MG/ 4 WEEKS
     Dates: start: 20091202, end: 20100401
  2. FEMARA [Concomitant]

REACTIONS (4)
  - DEBRIDEMENT [None]
  - DENTAL OPERATION [None]
  - OSTEONECROSIS [None]
  - PLASTIC SURGERY [None]
